FAERS Safety Report 10971384 (Version 1)
Quarter: 2015Q1

REPORT INFORMATION
  Report Type: Spontaneous
  Country: JP (occurrence: JP)
  Receive Date: 20150331
  Receipt Date: 20150331
  Transmission Date: 20150721
  Serious: Yes (Death, Disabling)
  Sender: FDA-Public Use
  Company Number: JP-BRISTOL-MYERS SQUIBB COMPANY-BMS-2015-009087

PATIENT
  Age: 85 Year
  Sex: Male
  Weight: 50 kg

DRUGS (11)
  1. CISPLATIN. [Concomitant]
     Active Substance: CISPLATIN
     Indication: HYPOPHARYNGEAL CANCER
     Dosage: 100 MG, QD
     Route: 041
     Dates: start: 20130823, end: 20130823
  2. ERBITUX [Suspect]
     Active Substance: CETUXIMAB
     Dosage: 380 MG, QWK
     Route: 041
     Dates: start: 20130830, end: 20131115
  3. TAKEPRON [Concomitant]
     Active Substance: LANSOPRAZOLE
     Indication: PRODUCT USED FOR UNKNOWN INDICATION
     Dosage: 15 MG, QD
     Route: 048
     Dates: start: 20130812
  4. SERMION                            /00396401/ [Concomitant]
     Indication: CEREBRAL INFARCTION
     Dosage: 5 MG, QD
     Route: 048
     Dates: start: 20130812
  5. AMARYL [Concomitant]
     Active Substance: GLIMEPIRIDE
     Indication: TYPE 2 DIABETES MELLITUS
     Dosage: 0.5 MG, QD
     Route: 048
     Dates: start: 20130812
  6. 5-FU                               /00098801/ [Concomitant]
     Active Substance: FLUOROURACIL
     Indication: HYPOPHARYNGEAL CANCER
     Dosage: 100 MG, QD
     Route: 041
     Dates: start: 20130823, end: 20130827
  7. ERBITUX [Suspect]
     Active Substance: CETUXIMAB
     Indication: HYPOPHARYNGEAL CANCER
     Dosage: 600 MG, QWK
     Route: 041
     Dates: start: 20130823, end: 20130823
  8. METGLUCO [Concomitant]
     Active Substance: METFORMIN HYDROCHLORIDE
     Indication: TYPE 2 DIABETES MELLITUS
     Dosage: 250 MG, BID
     Route: 048
     Dates: start: 20130812
  9. PLETAAL [Concomitant]
     Active Substance: CILOSTAZOL
     Indication: CEREBRAL INFARCTION
     Dosage: 100 MG, BID
     Route: 048
     Dates: start: 20130812
  10. TS-1 [Suspect]
     Active Substance: GIMERACIL\OTERACIL\TEGAFUR
     Indication: HYPOPHARYNGEAL CANCER
     Dosage: 80 MG, UNK
     Route: 048
     Dates: start: 20130930, end: 20131120
  11. EURODIN                            /00401202/ [Concomitant]
     Indication: INSOMNIA
     Dosage: 2 MG, QD
     Route: 048
     Dates: start: 20130812

REACTIONS (3)
  - Interstitial lung disease [Fatal]
  - Pharyngitis [Fatal]
  - Dermatitis [Recovered/Resolved]

NARRATIVE: CASE EVENT DATE: 20131106
